FAERS Safety Report 20882252 (Version 1)
Quarter: 2022Q2

REPORT INFORMATION
  Report Type: Report from Study
  Country: DE (occurrence: DE)
  Receive Date: 20220527
  Receipt Date: 20220527
  Transmission Date: 20220721
  Serious: Yes (Hospitalization)
  Sender: FDA-Public Use
  Company Number: DE-BRISTOL-MYERS SQUIBB COMPANY-2022-048320

PATIENT
  Sex: Female

DRUGS (7)
  1. APIXABAN [Suspect]
     Active Substance: APIXABAN
     Indication: Product used for unknown indication
     Dosage: 5 MILLIGRAM, BID
     Route: 065
  2. PROTEIN C [Suspect]
     Active Substance: PROTEIN C
     Indication: Protein C deficiency
     Dosage: 4000 MILLIGRAM, 2/WEEK
     Route: 042
     Dates: start: 20200901
  3. PROTEIN C [Suspect]
     Active Substance: PROTEIN C
     Dosage: 4000 MILLIGRAM, 2/WEEK
     Route: 042
     Dates: start: 20200901, end: 20210330
  4. PROTEIN C [Suspect]
     Active Substance: PROTEIN C
     Dosage: 4000 INTERNATIONAL UNIT, 2/WEEK
     Route: 042
     Dates: start: 20200901
  5. PROTEIN C [Suspect]
     Active Substance: PROTEIN C
     Dosage: 4000 INTERNATIONAL UNIT, 2/WEEK
     Route: 042
     Dates: start: 20201119
  6. PROTEIN C [Suspect]
     Active Substance: PROTEIN C
     Dosage: 4000 MILLIGRAM, 2/WEEK
     Route: 042
     Dates: start: 20201119
  7. PROTEIN C [Suspect]
     Active Substance: PROTEIN C
     Dosage: 4000 MILLIGRAM, 2/WEEK
     Route: 042
     Dates: start: 20201120

REACTIONS (18)
  - Nausea [Recovered/Resolved]
  - Wrong technique in product usage process [Recovered/Resolved]
  - Dermatitis allergic [Recovered/Resolved]
  - Cough [Not Recovered/Not Resolved]
  - Rhinorrhoea [Recovered/Resolved]
  - Headache [Recovered/Resolved]
  - COVID-19 [Recovered/Resolved]
  - Fatigue [Recovering/Resolving]
  - Pruritus [Recovered/Resolved]
  - Back pain [Recovered/Resolved]
  - Nasopharyngitis [Recovered/Resolved]
  - Chest pain [Recovering/Resolving]
  - Dysmenorrhoea [Not Recovered/Not Resolved]
  - Abdominal pain [Recovered/Resolved]
  - Injection site pain [Recovered/Resolved]
  - Oropharyngeal pain [Recovered/Resolved]
  - Gastritis [Recovered/Resolved]
  - Asthenia [Recovering/Resolving]

NARRATIVE: CASE EVENT DATE: 20210406
